FAERS Safety Report 15819259 (Version 1)
Quarter: 2019Q1

REPORT INFORMATION
  Report Type: Spontaneous
  Country: US (occurrence: US)
  Receive Date: 20190114
  Receipt Date: 20190114
  Transmission Date: 20190417
  Serious: No
  Sender: FDA-Public Use
  Company Number: US-ROCHE-2209847

PATIENT
  Age: 7 Year
  Sex: Male

DRUGS (3)
  1. QVAR [Concomitant]
     Active Substance: BECLOMETHASONE DIPROPIONATE
  2. NUTROPIN AQ [Suspect]
     Active Substance: SOMATROPIN
     Indication: BODY HEIGHT BELOW NORMAL
     Dosage: AQ NUSPIN 5 INJ
     Route: 058
     Dates: start: 20170628
  3. NUTROPIN AQ [Suspect]
     Active Substance: SOMATROPIN
     Indication: CONGENITAL ANOMALY

REACTIONS (1)
  - Injection site bruising [Unknown]

NARRATIVE: CASE EVENT DATE: 20181030
